FAERS Safety Report 21558692 (Version 2)
Quarter: 2023Q4

REPORT INFORMATION
  Report Type: Spontaneous
  Country: AU (occurrence: AU)
  Receive Date: 20221107
  Receipt Date: 20231030
  Transmission Date: 20240110
  Serious: Yes (Other)
  Sender: FDA-Public Use
  Company Number: AU-RECORDATI-2022001970

PATIENT

DRUGS (2)
  1. SIGNIFOR [Suspect]
     Active Substance: PASIREOTIDE DIASPARTATE
     Indication: Hypoglycaemia
     Dosage: 600 MICROGRAM, TID
     Route: 058
     Dates: start: 202108, end: 202112
  2. SIGNIFOR LAR [Suspect]
     Active Substance: PASIREOTIDE PAMOATE
     Indication: Hypoglycaemia
     Dosage: 10 MILLIGRAM
     Route: 030
     Dates: start: 202112, end: 202202

REACTIONS (2)
  - Hyperglycaemia [Recovered/Resolved]
  - Off label use [Recovered/Resolved]

NARRATIVE: CASE EVENT DATE: 20210801
